FAERS Safety Report 4415860-8 (Version None)
Quarter: 2004Q3

REPORT INFORMATION
  Report Type: 
  Country: None (occurrence: None)
  Receive Date: 20040730
  Receipt Date: 20040716
  Transmission Date: 20050211
  Serious: Yes (Congenital Anomaly)
  Sender: FDA-Public Use
  Company Number: 00/00102-FRA

PATIENT
  Sex: Female

DRUGS (1)
  1. MIRENA [Suspect]
     Dates: start: 19990625, end: 20000215

REACTIONS (6)
  - 17-HYDROXYPROGESTERONE INCREASED [None]
  - DRUG EXPOSURE DURING PREGNANCY [None]
  - FOETAL GROWTH RETARDATION [None]
  - MEDICATION ERROR [None]
  - PSEUDOHERMAPHRODITISM FEMALE [None]
  - WEIGHT GAIN POOR [None]
